FAERS Safety Report 17153044 (Version 1)
Quarter: 2019Q4

REPORT INFORMATION
  Report Type: Spontaneous
  Country: ES (occurrence: ES)
  Receive Date: 20191213
  Receipt Date: 20191213
  Transmission Date: 20200122
  Serious: Yes (Hospitalization)
  Sender: FDA-Public Use
  Company Number: ES-MYLANLABS-2019M1122868

PATIENT
  Age: 59 Year
  Sex: Female

DRUGS (4)
  1. TRASTUZUMAB. [Suspect]
     Active Substance: TRASTUZUMAB
     Indication: BREAST CANCER
     Dosage: UNK
     Route: 065
     Dates: start: 20190510, end: 20190628
  2. DOCETAXEL. [Interacting]
     Active Substance: DOCETAXEL
     Indication: BREAST CANCER
     Dosage: 130 MG CADA 21 D?AS
     Route: 042
     Dates: start: 20190510, end: 20190621
  3. PERJETA [Interacting]
     Active Substance: PERTUZUMAB
     Indication: BREAST CANCER
     Dosage: UNK
     Route: 042
     Dates: start: 20190510, end: 20190628
  4. CARBOPLATINO [Interacting]
     Active Substance: CARBOPLATIN
     Indication: BREAST CANCER
     Dosage: UNK
     Route: 042
     Dates: start: 20190510, end: 20190628

REACTIONS (4)
  - Drug interaction [Unknown]
  - Hypokalaemia [Recovered/Resolved]
  - Vomiting [Recovered/Resolved]
  - Febrile neutropenia [Recovered/Resolved]

NARRATIVE: CASE EVENT DATE: 20190623
